FAERS Safety Report 8874847 (Version 1)
Quarter: 2012Q4

REPORT INFORMATION
  Report Type: 
  Country: US (occurrence: US)
  Receive Date: 20121026
  Receipt Date: 20121026
  Transmission Date: 20130627
  Serious: No
  Sender: FDA-Public Use
  Company Number: US-AMGEN-USASP2012042514

PATIENT
  Age: 48 Year
  Sex: Female

DRUGS (12)
  1. ENBREL [Suspect]
     Indication: PRODUCT USED FOR UNKNOWN INDICATION
     Dosage: 50 mg, qwk
     Route: 058
  2. METHOTREXATE [Concomitant]
     Dosage: 2.5 mg, UNK
  3. GABAPENTIN [Concomitant]
     Dosage: 300 mg, UNK
  4. METFORMIN [Concomitant]
     Dosage: 1000 mg, UNK
  5. FOLIC ACID [Concomitant]
     Dosage: 1 mg, UNK
  6. LEVOTHYROXIN [Concomitant]
     Dosage: 200 Mcg
  7. ASPIRIN [Concomitant]
     Dosage: 81 mg EC, UNK
  8. VITAMIN D /00107901/ [Concomitant]
     Dosage: 1000 unit, UNK
  9. CALCIUM [Concomitant]
     Dosage: 500 mg, UNK
  10. VITAMIN C                          /00008001/ [Concomitant]
     Dosage: 1000 mg CHW, UNK
  11. OMEGA-3                            /01168901/ [Concomitant]
     Dosage: UNK
  12. FISH OIL [Concomitant]
     Dosage: UNK

REACTIONS (2)
  - Pain [Unknown]
  - Drug effect incomplete [Unknown]
